FAERS Safety Report 25751382 (Version 1)
Quarter: 2025Q3

REPORT INFORMATION
  Report Type: Spontaneous
  Country: US (occurrence: None)
  Receive Date: 20250901
  Receipt Date: 20250901
  Transmission Date: 20251020
  Serious: No
  Sender: FDA-CTU
  Company Number: None

PATIENT
  Age: 64 Year
  Sex: Female

DRUGS (2)
  1. HUMIRA [Suspect]
     Active Substance: ADALIMUMAB
     Indication: Crohn^s disease
     Route: 058
     Dates: start: 20201104
  2. HUMIRA [Suspect]
     Active Substance: ADALIMUMAB
     Indication: Disease complication

REACTIONS (2)
  - Obstruction [None]
  - Inflammation [None]

NARRATIVE: CASE EVENT DATE: 20250825
